FAERS Safety Report 9153507 (Version 1)
Quarter: 2013Q1

REPORT INFORMATION
  Report Type: Spontaneous
  Country: US (occurrence: US)
  Receive Date: 20130311
  Receipt Date: 20130311
  Transmission Date: 20140127
  Serious: Yes (Hospitalization)
  Sender: FDA-Public Use
  Company Number: US-BAYER-2013-028683

PATIENT
  Age: 25 Year
  Sex: Female

DRUGS (15)
  1. YAZ [Suspect]
     Indication: MENORRHAGIA
  2. YASMIN [Suspect]
     Indication: MENSTRUAL CYCLE MANAGEMENT
  3. OCELLA [Suspect]
  4. MULTIVITAMIN [Concomitant]
     Dosage: UNK, DAILY
  5. VITAMIN C [ASCORBIC ACID] [Concomitant]
  6. ALBUTEROL [Concomitant]
     Indication: DYSPNOEA
     Dosage: UNK, PRN
  7. ZYRTEC [CETIRIZINE HYDROCHLORIDE] [Concomitant]
     Dosage: UNK, DAILY
  8. MAXALT [Concomitant]
     Indication: MIGRAINE
     Dosage: UNK, PRN
  9. HYDROCODONE [HYDROCODONE] [Concomitant]
  10. IBUPROFEN [IBUPROFEN] [Concomitant]
  11. VICODIN [Concomitant]
  12. VALIUM [DIAZEPAM] [Concomitant]
  13. MAGSAL [Concomitant]
  14. PERCOCET [OXYCODONE HYDROCHLORIDE,PARACETAMOL] [Concomitant]
  15. ZITHROMAX [Concomitant]

REACTIONS (1)
  - Pulmonary embolism [Recovered/Resolved]
